FAERS Safety Report 24357139 (Version 2)
Quarter: 2024Q3

REPORT INFORMATION
  Report Type: Spontaneous
  Country: US (occurrence: US)
  Receive Date: 20240924
  Receipt Date: 20240926
  Transmission Date: 20241017
  Serious: No
  Sender: ROCHE
  Company Number: US-ROCHE-10000088931

PATIENT
  Age: 49 Year
  Sex: Female

DRUGS (2)
  1. RITUXIMAB [Suspect]
     Active Substance: RITUXIMAB
     Indication: Epstein-Barr viraemia
     Route: 065
  2. NIVOLUMAB [Concomitant]
     Active Substance: NIVOLUMAB

REACTIONS (2)
  - Treatment failure [Unknown]
  - No adverse event [Unknown]
